FAERS Safety Report 4525983-0 (Version None)
Quarter: 2004Q4

REPORT INFORMATION
  Report Type: 
  Country: None (occurrence: None)
  Receive Date: 20041214
  Receipt Date: 20041202
  Transmission Date: 20050328
  Serious: Yes (Hospitalization)
  Sender: FDA-Public Use
  Company Number: AR-JNJFOC-20041201173

PATIENT
  Age: 50 Year
  Sex: Female
  Weight: 99 kg

DRUGS (7)
  1. REMICADE [Suspect]
     Dosage: 8 INFUSIONS
     Route: 042
  2. REMICADE [Suspect]
     Route: 042
  3. BETHAMETASONE [Concomitant]
     Route: 030
  4. ROFECOXIB [Concomitant]
  5. ETORICOXIB [Concomitant]
  6. FLUOXETINE [Concomitant]
  7. PAROXETINE [Concomitant]

REACTIONS (6)
  - AMNESIA [None]
  - GRAND MAL CONVULSION [None]
  - INCONTINENCE [None]
  - PANIC ATTACK [None]
  - RESPIRATORY DISTRESS [None]
  - TRANSIENT ISCHAEMIC ATTACK [None]
